FAERS Safety Report 4523764-5 (Version None)
Quarter: 2004Q4

REPORT INFORMATION
  Report Type: 
  Country: None (occurrence: None)
  Receive Date: 20041119
  Receipt Date: 20040908
  Transmission Date: 20050328
  Serious: No
  Sender: FDA-Public Use
  Company Number: PHEH2004US09662

PATIENT
  Age: 76 Year
  Sex: Female

DRUGS (7)
  1. ZELNORM [Suspect]
     Indication: IRRITABLE BOWEL SYNDROME
     Dosage: 6 MG, BID, ORAL
     Route: 048
     Dates: start: 20040901, end: 20040907
  2. COUMADIN [Concomitant]
  3. AMBIEN [Concomitant]
  4. TEMAZEPAM [Concomitant]
  5. PAXIL [Concomitant]
  6. TAZAC (NIZATIDINE) [Concomitant]
  7. OXYCONTIN [Concomitant]

REACTIONS (1)
  - JOINT SWELLING [None]
